FAERS Safety Report 5654956-X (Version None)
Quarter: 2008Q1

REPORT INFORMATION
  Report Type: 
  Country: None (occurrence: None)
  Receive Date: 20080219
  Receipt Date: 20071105
  Transmission Date: 20080703
  Serious: No
  Sender: FDA-Public Use
  Company Number: WAES 0711USA00829

PATIENT
  Age: 78 Year
  Sex: Female

DRUGS (4)
  1. JANUVIA [Suspect]
     Indication: DIABETES MELLITUS
     Dosage: 100 MG/DAILY/PO
     Route: 048
     Dates: start: 20070801
  2. [THERAPY UNSPECIFIED] [Concomitant]
  3. [THERAPY UNSPECIFIED] [Concomitant]
  4. INSULIN [Concomitant]

REACTIONS (2)
  - PAIN [None]
  - PRURITUS [None]
